FAERS Safety Report 21535502 (Version 1)
Quarter: 2022Q4

REPORT INFORMATION
  Report Type: Spontaneous
  Country: US (occurrence: None)
  Receive Date: 20221031
  Receipt Date: 20221031
  Transmission Date: 20230113
  Serious: Yes (Other)
  Sender: FDA-Public Use
  Company Number: None

PATIENT
  Age: 76 Year
  Sex: Male
  Weight: 90.9 kg

DRUGS (13)
  1. REVLIMID [Suspect]
     Active Substance: LENALIDOMIDE
     Indication: Plasma cell myeloma
     Dosage: OTHER FREQUENCY : 14 DAYS ON/7 OFF;?
     Route: 048
     Dates: start: 20210929
  2. AMIODARONE [Concomitant]
     Active Substance: AMIODARONE
  3. ATORVASTATIN [Concomitant]
     Active Substance: ATORVASTATIN
  4. ASPIRIN [Concomitant]
     Active Substance: ASPIRIN
  5. DULOXETINE [Concomitant]
     Active Substance: DULOXETINE
  6. FLOMAX [Concomitant]
     Active Substance: TAMSULOSIN HYDROCHLORIDE
  7. FUROSEMIDE [Concomitant]
     Active Substance: FUROSEMIDE
  8. GABAPENTIN [Concomitant]
     Active Substance: GABAPENTIN
  9. LISINOPRIL [Concomitant]
     Active Substance: LISINOPRIL
  10. ONDANSETRON [Concomitant]
     Active Substance: ONDANSETRON
  11. PANTOPRAZOLE [Concomitant]
     Active Substance: PANTOPRAZOLE
  12. OXYCODONE [Concomitant]
     Active Substance: OXYCODONE
  13. WARFARIN [Concomitant]
     Active Substance: WARFARIN

REACTIONS (1)
  - Neutropenia [None]

NARRATIVE: CASE EVENT DATE: 20220914
